FAERS Safety Report 5119129-8 (Version None)
Quarter: 2006Q3

REPORT INFORMATION
  Report Type: 
  Country: None (occurrence: None)
  Receive Date: 20060929
  Receipt Date: 20060929
  Transmission Date: 20061208
  Serious: Yes (Hospitalization)
  Sender: FDA-Public Use
  Company Number: None

PATIENT
  Sex: Male
  Weight: 93.8 kg

DRUGS (3)
  1. CYCLOSPORINE [Suspect]
     Dosage: 4985 MG
  2. CYTARABINE [Suspect]
     Dosage: 1929 MG
  3. DAUNORUBICIN HCL [Suspect]
     Dosage: 300 MG

REACTIONS (9)
  - CARDIO-RESPIRATORY ARREST [None]
  - GENERAL PHYSICAL HEALTH DETERIORATION [None]
  - HAEMORRHAGE [None]
  - HYPOXIA [None]
  - INTUBATION COMPLICATION [None]
  - LEUKOCYTOSIS [None]
  - LUNG INJURY [None]
  - PLEURAL EFFUSION [None]
  - PULMONARY HAEMORRHAGE [None]
